FAERS Safety Report 11054704 (Version 1)
Quarter: 2015Q2

REPORT INFORMATION
  Report Type: Spontaneous
  Country: US (occurrence: None)
  Receive Date: 20150420
  Receipt Date: 20150420
  Transmission Date: 20150821
  Serious: Yes (Other)
  Sender: FDA-Public Use
  Company Number: US-2015VAL000255

PATIENT
  Age: 67 Year
  Sex: Female
  Weight: 78.9 kg

DRUGS (1)
  1. LOPRESSOR [Suspect]
     Active Substance: METOPROLOL TARTRATE
     Indication: HYPERTENSION

REACTIONS (2)
  - Injury [None]
  - Hallucination [None]
